FAERS Safety Report 4620872-5 (Version None)
Quarter: 2005Q1

REPORT INFORMATION
  Report Type: 
  Country: None (occurrence: None)
  Receive Date: 20050325
  Receipt Date: 20050316
  Transmission Date: 20050727
  Serious: Yes (Hospitalization)
  Sender: FDA-Public Use
  Company Number: TPG2005A00087

PATIENT
  Age: 56 Year
  Sex: Female

DRUGS (3)
  1. PIOGLITAZONE HCL [Suspect]
     Indication: DIABETES MELLITUS NON-INSULIN-DEPENDENT
     Dosage: 30 MG (30 MG, 1 IN 1 D)
     Route: 048
     Dates: start: 20041119, end: 20041214
  2. AQUAPHOR (XIPAMIDE) [Concomitant]
  3. SPASMEX (TROSPIUM CHLORIDE) [Concomitant]

REACTIONS (3)
  - CONDITION AGGRAVATED [None]
  - MONOPARESIS [None]
  - MULTIPLE SCLEROSIS [None]
